FAERS Safety Report 23100632 (Version 1)
Quarter: 2023Q4

REPORT INFORMATION
  Report Type: Spontaneous
  Country: US (occurrence: None)
  Receive Date: 20231020
  Receipt Date: 20231020
  Transmission Date: 20240110
  Serious: Yes (Hospitalization)
  Sender: FDA-Public Use
  Company Number: None

PATIENT
  Age: 89 Year
  Sex: Male
  Weight: 65 kg

DRUGS (1)
  1. SULFAMETHOXAZOLE AND TRIMETHOPRIM [Suspect]
     Active Substance: SULFAMETHOXAZOLE\TRIMETHOPRIM
     Dosage: OTHER QUANTITY : 800/160 MG;?FREQUENCY : TWICE A DAY;?
     Route: 048
     Dates: start: 20220824, end: 20220830

REACTIONS (7)
  - Hyperkalaemia [None]
  - Acute kidney injury [None]
  - Electrocardiogram T wave peaked [None]
  - Toe amputation [None]
  - Osteomyelitis [None]
  - Proteus infection [None]
  - Localised infection [None]

NARRATIVE: CASE EVENT DATE: 20220901
